FAERS Safety Report 7458767-4 (Version None)
Quarter: 2011Q2

REPORT INFORMATION
  Report Type: 
  Country: None (occurrence: None)
  Receive Date: 20110504
  Receipt Date: 20110427
  Transmission Date: 20111010
  Serious: Yes (Hospitalization)
  Sender: FDA-Public Use
  Company Number: FR-PFIZER INC-2010175733

PATIENT
  Age: 87 Year
  Sex: Male

DRUGS (6)
  1. CHRONADALATE [Suspect]
     Dosage: 30 MG, DAILY
     Route: 048
     Dates: end: 20101103
  2. INIPOMP [Suspect]
     Dosage: 40 MG, 1X/DAY
     Route: 048
     Dates: end: 20101103
  3. RAMIPRIL [Suspect]
     Dosage: 10 MG, UNK
     Route: 048
     Dates: end: 20101103
  4. SEROPLEX [Suspect]
     Dosage: 5 MG, AS NEEDED
     Route: 048
     Dates: end: 20101103
  5. EFFERALGAN [Suspect]
     Dosage: 1 G, 3X/DAY
     Route: 048
     Dates: end: 20101103
  6. DICLOFENAC [Suspect]
     Dosage: 1 DF, AS NEEDED
     Route: 003
     Dates: end: 20101103

REACTIONS (2)
  - BONE MARROW FAILURE [None]
  - PANCYTOPENIA [None]
